FAERS Safety Report 8921959 (Version 1)
Quarter: 2012Q4

REPORT INFORMATION
  Report Type: Spontaneous
  Country: US (occurrence: None)
  Receive Date: 20121109
  Receipt Date: 20121109
  Transmission Date: 20130627
  Serious: Yes (Other)
  Sender: FDA-Public Use
  Company Number: 2012S1000713

PATIENT
  Age: 68 Year
  Sex: Female
  Weight: 108 kg

DRUGS (13)
  1. CUBICIN [Suspect]
     Indication: INFECTION MRSA
     Route: 042
     Dates: start: 20110809, end: 20110822
  2. CUBICIN [Suspect]
     Indication: OSTEOMYELITIS
     Route: 042
     Dates: start: 20110809, end: 20110822
  3. ASPIRIN [Concomitant]
  4. LOVENOX [Concomitant]
  5. LEXAPRO [Concomitant]
  6. INSULIN [Concomitant]
  7. MTEOPROLOL [Concomitant]
  8. RIFAMPIN [Concomitant]
  9. DIOVAN [Concomitant]
  10. LIPITOR [Concomitant]
  11. PLAVIX [Concomitant]
  12. TORSEMIDE [Concomitant]
  13. DARVOCET [Concomitant]

REACTIONS (2)
  - Blood creatine phosphokinase increased [None]
  - Off label use [None]
